FAERS Safety Report 17671401 (Version 1)
Quarter: 2020Q2

REPORT INFORMATION
  Report Type: Report from Study
  Country: IT (occurrence: IT)
  Receive Date: 20200415
  Receipt Date: 20200415
  Transmission Date: 20200713
  Serious: Yes (Other)
  Sender: FDA-Public Use
  Company Number: IT-MYLANLABS-2020M1037988

PATIENT
  Age: 71 Year
  Sex: Female
  Weight: 70 kg

DRUGS (2)
  1. CARBOPLATINO TEVA [Concomitant]
     Active Substance: CARBOPLATIN
     Indication: OVARIAN CANCER
     Dosage: 505.1 MILLIGRAM
     Route: 042
     Dates: start: 20190806
  2. PACLITAXEL MYLAN GENERICS 6 MG/ML [Suspect]
     Active Substance: PACLITAXEL
     Indication: OVARIAN CANCER
     Dosage: 315 MILLIGRAM, CYCLE
     Route: 042
     Dates: start: 20190806

REACTIONS (2)
  - Paraesthesia [Not Recovered/Not Resolved]
  - Neurotoxicity [Not Recovered/Not Resolved]

NARRATIVE: CASE EVENT DATE: 20191118
